FAERS Safety Report 8120774-6 (Version None)
Quarter: 2012Q1

REPORT INFORMATION
  Report Type: 
  Country: None (occurrence: None)
  Receive Date: 20120207
  Receipt Date: 20120130
  Transmission Date: 20120608
  Serious: Yes (Hospitalization)
  Sender: FDA-Public Use
  Company Number: DE-ABBOTT-12P-062-0899646-00

PATIENT
  Age: 41 Year
  Sex: Male
  Weight: 80 kg

DRUGS (5)
  1. TRUVADA 200 [Concomitant]
     Indication: PRODUCT USED FOR UNKNOWN INDICATION
     Dosage: 245 MG DAILY
     Dates: start: 20110720
  2. SULFADIAZINE [Concomitant]
     Indication: PRODUCT USED FOR UNKNOWN INDICATION
  3. DORAPRIM [Concomitant]
     Indication: PRODUCT USED FOR UNKNOWN INDICATION
     Dosage: 75 MG DAILY
  4. KALETRA [Suspect]
     Indication: HIV INFECTION
     Dates: start: 20110720
  5. COTRIM 800 [Concomitant]
     Indication: PRODUCT USED FOR UNKNOWN INDICATION
     Dates: end: 20111204

REACTIONS (3)
  - VERTIGO [None]
  - HEADACHE [None]
  - CEREBRAL TOXOPLASMOSIS [None]
